FAERS Safety Report 10209794 (Version 2)
Quarter: 2014Q2

REPORT INFORMATION
  Report Type: Spontaneous
  Country: IT (occurrence: IT)
  Receive Date: 20140602
  Receipt Date: 20140602
  Transmission Date: 20141212
  Serious: Yes (Other)
  Sender: FDA-Public Use
  Company Number: PHHY2014IT056805

PATIENT
  Age: 9 Year
  Sex: Male

DRUGS (2)
  1. EXJADE [Suspect]
     Indication: HAEMOSIDEROSIS
     Dosage: 500 MG, DAILY
     Route: 048
     Dates: start: 20140424
  2. EXJADE [Suspect]
     Dosage: UNK UKN, UNK

REACTIONS (3)
  - Periorbital oedema [Recovered/Resolved]
  - Lip swelling [Recovered/Resolved]
  - Rash [Recovered/Resolved]
